FAERS Safety Report 24860497 (Version 2)
Quarter: 2025Q1

REPORT INFORMATION
  Report Type: Spontaneous
  Country: DE (occurrence: DE)
  Receive Date: 20250120
  Receipt Date: 20250123
  Transmission Date: 20250409
  Serious: Yes (Hospitalization, Other)
  Sender: AUROBINDO
  Company Number: DE-Eisai-EC-2025-181830

PATIENT
  Age: 72 Year
  Sex: Female
  Weight: 75.4 kg

DRUGS (7)
  1. DONEPEZIL [Suspect]
     Active Substance: DONEPEZIL
     Indication: Product used for unknown indication
     Route: 048
  2. MEMANTINE [Suspect]
     Active Substance: MEMANTINE
     Indication: Product used for unknown indication
     Route: 065
  3. NITROFURANTOIN [Suspect]
     Active Substance: NITROFURANTOIN
     Indication: Product used for unknown indication
     Route: 065
  4. TROSPIUM CHLORIDE [Suspect]
     Active Substance: TROSPIUM CHLORIDE
     Indication: Product used for unknown indication
     Route: 065
  5. LEVOTHYROXINE SODIUM [Suspect]
     Active Substance: LEVOTHYROXINE SODIUM
     Indication: Product used for unknown indication
     Route: 065
  6. LECANEMAB [Concomitant]
     Active Substance: LECANEMAB
     Indication: Dementia Alzheimer^s type
     Route: 048
     Dates: start: 20201007, end: 20220525
  7. LECANEMAB [Concomitant]
     Active Substance: LECANEMAB
     Route: 048
     Dates: start: 20220608

REACTIONS (2)
  - Gastric perforation [Unknown]
  - Hiatus hernia [Not Recovered/Not Resolved]

NARRATIVE: CASE EVENT DATE: 20241216
